FAERS Safety Report 8784234 (Version 1)
Quarter: 2012Q4

REPORT INFORMATION
  Report Type: Report from Study
  Country: US (occurrence: US)
  Receive Date: 20120913
  Receipt Date: 20120913
  Transmission Date: 20130627
  Serious: Yes (Other)
  Sender: FDA-Public Use
  Company Number: US-VERTEX PHARMACEUTICAL INC.-AE-2012-009316

PATIENT
  Age: 57 Year
  Sex: Male
  Weight: 88.44 kg

DRUGS (5)
  1. VX-950 (TELAPREVIR) [Suspect]
     Indication: HEPATITIS C
     Dosage: 750 mg, tid
     Route: 048
     Dates: start: 20120507
  2. PEGASYS [Concomitant]
     Indication: HEPATITIS C
     Dosage: UNK
  3. TRAMADOL HYDROCHLORIDE [Concomitant]
     Dosage: 50 mg, UNK
     Route: 048
  4. RIBAVIRIN [Concomitant]
     Dosage: 200 mg, UNK
     Route: 048
  5. CALAMINE [Concomitant]

REACTIONS (9)
  - Anaemia [Unknown]
  - Headache [Unknown]
  - Headache [Unknown]
  - Dry mouth [Unknown]
  - Vertigo [Unknown]
  - Dizziness [Unknown]
  - Rash [Unknown]
  - Pruritus [Unknown]
  - Rash [Unknown]
